FAERS Safety Report 11450963 (Version 1)
Quarter: 2015Q3

REPORT INFORMATION
  Report Type: Spontaneous
  Country: US (occurrence: US)
  Receive Date: 20150903
  Receipt Date: 20150903
  Transmission Date: 20151125
  Serious: No
  Sender: FDA-Public Use
  Company Number: US-ROCHE-788146

PATIENT
  Sex: Male

DRUGS (5)
  1. COPEGUS [Suspect]
     Active Substance: RIBAVIRIN
     Indication: CHRONIC HEPATITIS C
     Dosage: DIVIDED DOSES
     Route: 048
  2. PEGASYS [Suspect]
     Active Substance: PEGINTERFERON ALFA-2A
     Indication: CHRONIC HEPATITIS C
     Route: 058
  3. PEGASYS [Suspect]
     Active Substance: PEGINTERFERON ALFA-2A
     Dosage: DOSE REDUCED
     Route: 065
  4. INCIVO [Suspect]
     Active Substance: TELAPREVIR
     Indication: CHRONIC HEPATITIS C
     Route: 065
  5. COPEGUS [Suspect]
     Active Substance: RIBAVIRIN
     Dosage: DOSE REDUCED
     Route: 065

REACTIONS (7)
  - Depression [Unknown]
  - Dry throat [Unknown]
  - Rash pruritic [Unknown]
  - Insomnia [Unknown]
  - Hearing impaired [Unknown]
  - Rash [Unknown]
  - Dysphagia [Unknown]
